FAERS Safety Report 11654816 (Version 1)
Quarter: 2015Q4

REPORT INFORMATION
  Report Type: Report from Study
  Country: BR (occurrence: BR)
  Receive Date: 20151023
  Receipt Date: 20151023
  Transmission Date: 20160304
  Serious: Yes (Other)
  Sender: FDA-Public Use
  Company Number: PHHY2015BR135348

PATIENT
  Sex: Male
  Weight: 55 kg

DRUGS (1)
  1. TASIGNA [Suspect]
     Active Substance: NILOTINIB
     Indication: PRODUCT USED FOR UNKNOWN INDICATION
     Dosage: BID (IN THE MORNING AND AT NIGHT)
     Route: 065

REACTIONS (4)
  - Mental retardation [Unknown]
  - Anger [Unknown]
  - Regressive behaviour [Unknown]
  - Malaise [Unknown]
